FAERS Safety Report 5374010-4 (Version None)
Quarter: 2007Q2

REPORT INFORMATION
  Report Type: 
  Country: None (occurrence: None)
  Receive Date: 20070628
  Receipt Date: 20070625
  Transmission Date: 20071010
  Serious: Yes (Hospitalization)
  Sender: FDA-Public Use
  Company Number: US-MERCK-0706USA05016

PATIENT
  Sex: Female
  Weight: 136 kg

DRUGS (1)
  1. JANUVIA [Suspect]
     Route: 048
     Dates: start: 20070501, end: 20070601

REACTIONS (5)
  - CELLULITIS [None]
  - COUGH [None]
  - NASAL CONGESTION [None]
  - PYREXIA [None]
  - RHINORRHOEA [None]
